FAERS Safety Report 8776337 (Version 2)
Quarter: 2012Q4

REPORT INFORMATION
  Report Type: 
  Country: JP (occurrence: JP)
  Receive Date: 20120910
  Receipt Date: 20120925
  Transmission Date: 20130627
  Serious: Yes (Other)
  Sender: FDA-Public Use
  Company Number: JP-PFIZER INC-2012220348

PATIENT
  Age: 81 Year
  Sex: Female

DRUGS (1)
  1. SELARA [Suspect]
     Dosage: 50 mg, 1x/day
     Route: 048
     Dates: start: 20120806

REACTIONS (2)
  - Blood potassium increased [Unknown]
  - Glomerular filtration rate decreased [Unknown]
